FAERS Safety Report 4862514-X (Version None)
Quarter: 2005Q4

REPORT INFORMATION
  Report Type: 
  Country: None (occurrence: None)
  Receive Date: 20051221
  Receipt Date: 20051114
  Transmission Date: 20060501
  Serious: Yes (Other)
  Sender: FDA-Public Use
  Company Number: PHNU2005DE03752

PATIENT
  Age: 64 Year
  Sex: Female
  Weight: 52 kg

DRUGS (2)
  1. FEMARA [Suspect]
     Indication: BREAST CANCER FEMALE
     Dosage: 2.5 MG, QD
     Route: 048
     Dates: start: 20050615
  2. URBASON [Concomitant]
     Route: 065
     Dates: end: 20050901

REACTIONS (2)
  - ALVEOLITIS [None]
  - DYSPNOEA [None]
